FAERS Safety Report 7725525-2 (Version None)
Quarter: 2011Q3

REPORT INFORMATION
  Report Type: 
  Country: None (occurrence: None)
  Receive Date: 20110902
  Receipt Date: 20110506
  Transmission Date: 20111222
  Serious: No
  Sender: FDA-Public Use
  Company Number: US-BRISTOL-MYERS SQUIBB COMPANY-15618606

PATIENT
  Age: 30 Year
  Sex: Female
  Weight: 65 kg

DRUGS (1)
  1. KOMBIGLYZE XR [Suspect]
     Dosage: 1 DF = 5/500 MG TABLETS
     Dates: start: 20110302

REACTIONS (4)
  - FUNGAL INFECTION [None]
  - DRUG INEFFECTIVE [None]
  - CYSTITIS [None]
  - HAEMATURIA [None]
